FAERS Safety Report 18126346 (Version 1)
Quarter: 2020Q3

REPORT INFORMATION
  Report Type: Spontaneous
  Country: US (occurrence: US)
  Receive Date: 20200808
  Receipt Date: 20200808
  Transmission Date: 20201103
  Serious: Yes (Other)
  Sender: FDA-Public Use
  Company Number: US-SPECGX-T202001408

PATIENT
  Age: 64 Year
  Sex: Male

DRUGS (16)
  1. MODAFINIL. [Suspect]
     Active Substance: MODAFINIL
     Indication: CRANIOCEREBRAL INJURY
     Dosage: UNK
     Route: 065
  2. OLANZAPINE. [Suspect]
     Active Substance: OLANZAPINE
     Indication: NERVOUS SYSTEM DISORDER
  3. CLARITHROMYCIN. [Suspect]
     Active Substance: CLARITHROMYCIN
     Indication: NERVOUS SYSTEM DISORDER
  4. MODAFINIL. [Suspect]
     Active Substance: MODAFINIL
     Indication: NERVOUS SYSTEM DISORDER
  5. ZOLPIDEM [Suspect]
     Active Substance: ZOLPIDEM TARTRATE
     Indication: NERVOUS SYSTEM DISORDER
  6. CLARITHROMYCIN. [Suspect]
     Active Substance: CLARITHROMYCIN
     Indication: CRANIOCEREBRAL INJURY
     Dosage: UNK
     Route: 065
  7. ZOLPIDEM [Suspect]
     Active Substance: ZOLPIDEM TARTRATE
     Indication: CRANIOCEREBRAL INJURY
     Dosage: UNK
     Route: 065
  8. LEVETIRACETAM. [Suspect]
     Active Substance: LEVETIRACETAM
     Indication: CRANIOCEREBRAL INJURY
     Dosage: UNK
     Route: 065
  9. LAMOTRIGINE. [Suspect]
     Active Substance: LAMOTRIGINE
     Indication: NERVOUS SYSTEM DISORDER
  10. GABAPENTIN. [Suspect]
     Active Substance: GABAPENTIN
     Indication: CRANIOCEREBRAL INJURY
     Dosage: UNK
     Route: 065
  11. TOFRANIL [Suspect]
     Active Substance: IMIPRAMINE HYDROCHLORIDE
     Indication: CRANIOCEREBRAL INJURY
     Dosage: UNK
     Route: 065
  12. TOFRANIL [Suspect]
     Active Substance: IMIPRAMINE HYDROCHLORIDE
     Indication: NERVOUS SYSTEM DISORDER
  13. OLANZAPINE. [Suspect]
     Active Substance: OLANZAPINE
     Indication: CRANIOCEREBRAL INJURY
     Dosage: UNK
     Route: 065
  14. LEVETIRACETAM. [Suspect]
     Active Substance: LEVETIRACETAM
     Indication: NERVOUS SYSTEM DISORDER
  15. LAMOTRIGINE. [Suspect]
     Active Substance: LAMOTRIGINE
     Indication: CRANIOCEREBRAL INJURY
     Dosage: UNK
     Route: 065
  16. GABAPENTIN. [Suspect]
     Active Substance: GABAPENTIN
     Indication: NERVOUS SYSTEM DISORDER

REACTIONS (7)
  - Cognitive disorder [Recovering/Resolving]
  - Trismus [Recovering/Resolving]
  - Paranoia [Recovering/Resolving]
  - Fall [Unknown]
  - Memory impairment [Recovering/Resolving]
  - Delusion [Recovering/Resolving]
  - Muscle rigidity [Recovering/Resolving]
